FAERS Safety Report 6382054-9 (Version None)
Quarter: 2009Q3

REPORT INFORMATION
  Report Type: 
  Country: None (occurrence: None)
  Receive Date: 20090930
  Receipt Date: 20090917
  Transmission Date: 20100115
  Serious: Yes (Hospitalization, Other)
  Sender: FDA-Public Use
  Company Number: PHHY2009BR40268

PATIENT
  Sex: Male

DRUGS (1)
  1. DESFERAL [Suspect]
     Indication: SERUM FERRITIN INCREASED
     Dosage: UNK
     Dates: end: 20090904

REACTIONS (5)
  - ARTHRALGIA [None]
  - ISCHAEMIA [None]
  - SERUM FERRITIN INCREASED [None]
  - SICKLE CELL TRAIT [None]
  - TREATMENT NONCOMPLIANCE [None]
